FAERS Safety Report 5989990-3 (Version None)
Quarter: 2008Q4

REPORT INFORMATION
  Report Type: 
  Country: None (occurrence: None)
  Receive Date: 20081211
  Receipt Date: 20081208
  Transmission Date: 20090506
  Serious: Yes (Hospitalization)
  Sender: FDA-Public Use
  Company Number: US-SP-2008-03941

PATIENT
  Age: 65 Year
  Sex: Male

DRUGS (7)
  1. THERACYS [Suspect]
     Indication: BLADDER CANCER
     Route: 043
     Dates: start: 20081119
  2. ASPIRIN [Concomitant]
  3. ^KOREG^ [Concomitant]
  4. PROTONIX [Concomitant]
  5. LASIX [Concomitant]
  6. POTASSIUM CHLORIDE [Concomitant]
  7. PREDNISONE TAB [Concomitant]

REACTIONS (4)
  - CHILLS [None]
  - LIVER FUNCTION TEST ABNORMAL [None]
  - PNEUMONIA [None]
  - PYREXIA [None]
